FAERS Safety Report 20680988 (Version 4)
Quarter: 2022Q3

REPORT INFORMATION
  Report Type: Spontaneous
  Country: US (occurrence: US)
  Receive Date: 20220406
  Receipt Date: 20220906
  Transmission Date: 20221026
  Serious: Yes (Other)
  Sender: FDA-Public Use
  Company Number: US-PFIZER INC-202200474194

PATIENT
  Age: 28 Year
  Sex: Female

DRUGS (2)
  1. XELJANZ [Suspect]
     Active Substance: TOFACITINIB CITRATE
     Indication: Colitis ulcerative
     Dosage: 5 MG, 2X/DAY
     Route: 048
     Dates: start: 202001
  2. PREDNISONE [Concomitant]
     Active Substance: PREDNISONE
     Dosage: UNK

REACTIONS (15)
  - Rheumatoid arthritis [Unknown]
  - Haematochezia [Unknown]
  - Pain in extremity [Unknown]
  - Back pain [Unknown]
  - Skin disorder [Unknown]
  - Arthralgia [Unknown]
  - Pyrexia [Unknown]
  - Illness [Unknown]
  - Nasopharyngitis [Unknown]
  - Bowel movement irregularity [Recovering/Resolving]
  - Diarrhoea [Unknown]
  - Frequent bowel movements [Unknown]
  - Arthritis [Unknown]
  - Inflammation [Unknown]
  - Faecal calprotectin increased [Unknown]

NARRATIVE: CASE EVENT DATE: 20201201
